FAERS Safety Report 6013551-3 (Version None)
Quarter: 2008Q4

REPORT INFORMATION
  Report Type: 
  Country: None (occurrence: None)
  Receive Date: 20081219
  Receipt Date: 20081210
  Transmission Date: 20090506
  Serious: Yes (Other)
  Sender: FDA-Public Use
  Company Number: PHHY2008CA25250

PATIENT
  Sex: Female
  Weight: 90.703 kg

DRUGS (36)
  1. CLOZARIL [Suspect]
     Indication: SCHIZOPHRENIA
     Dosage: 25 MG A.M. AND HS FOR ONE WEEK
     Dates: start: 20031022
  2. CLOZARIL [Suspect]
     Dosage: 50 MG AM AND HS FOR ONE MONTH
  3. CLOZARIL [Suspect]
     Dosage: 50 MG AM, 150 MG HS
  4. CLOZARIL [Suspect]
     Dosage: 225 MG HS, 50 MG AM
     Route: 048
  5. COGENTIN [Concomitant]
     Dosage: 2 MG AM
  6. SERAX [Concomitant]
     Dosage: 15 MG AM, 30 MG HS
  7. RABEPRAZOLE SODIUM [Concomitant]
     Dosage: 10 MG, BID
     Route: 048
  8. ATORVASTATIN [Concomitant]
     Dosage: 20 MG HS
     Route: 048
  9. VITAMIN B-12 [Concomitant]
     Dosage: 1 CC MONTHLY
     Route: 030
  10. VITAMIN B-12 [Concomitant]
     Dosage: 1000 UG/ML; 1 ML GIVEN IM IN RIGHT DELTOID
     Route: 030
  11. CELEBREX [Concomitant]
     Dosage: 200 MG AM, OD
     Route: 048
  12. BLACK COHOSH [Concomitant]
     Dosage: 40 MG, BID
     Route: 048
  13. ASPIRIN [Concomitant]
     Dosage: 325 MG, PRN
  14. DOVONEX [Concomitant]
     Dosage: PRN
  15. DOVONEX [Concomitant]
     Dosage: BID
  16. FUCIDINE CAP [Concomitant]
     Dosage: PRN
  17. FUCIDINE CAP [Concomitant]
     Dosage: BID
  18. CLOTRIMAZOLE [Concomitant]
     Dosage: PRN
  19. CLOTRIMAZOLE [Concomitant]
     Dosage: UNK
  20. LIPITOR [Concomitant]
     Indication: HYPERCHOLESTEROLAEMIA
     Dosage: 20 MG
     Route: 048
  21. LIPITOR [Concomitant]
     Indication: DYSLIPIDAEMIA
  22. ZYPREXA [Concomitant]
     Dosage: 5 MG AM, 7.5 MG H.S
  23. ZYPREXA [Concomitant]
     Dosage: 2.5 MG AM, 5 MG HS FOR 2 WEEKS
  24. ATROPINE [Concomitant]
     Dosage: 2 DROPS IN WATER AM AND HS
  25. PENLAC [Concomitant]
     Indication: NAIL DISORDER
     Dosage: QD
  26. DIPROSALIC [Concomitant]
     Indication: SKIN LESION
     Dosage: BID
  27. SOFRACORT II GTTS [Concomitant]
     Dosage: BID
  28. VITAMIN B-12 [Concomitant]
     Dosage: 1 ML GIVEN IM IN LEFT DELTOID
     Route: 030
  29. GRAVOL TAB [Concomitant]
     Dosage: 25 MG, Q6H PM
     Route: 048
  30. TYLENOL (CAPLET) [Concomitant]
     Dosage: PD Q4H PRN
  31. METAMUCIL [Concomitant]
     Dosage: 1 TBS OD WITH LARGE GLASS OF WATER
  32. ZINC SULFATE [Concomitant]
     Dosage: PR OD
  33. LOPERAMIDE HYDROCHLORIDE [Concomitant]
     Dosage: 2 MG, TID
     Route: 048
  34. HYDROCORTISONE [Concomitant]
     Dosage: BID
  35. BENZTROPINE MESYLATE [Concomitant]
     Dosage: 2 MG, QD
     Route: 048
  36. OXAZEPAM [Concomitant]
     Dosage: 15 MG QAM, 30 MG QHS
     Route: 048

REACTIONS (10)
  - EAR INFECTION [None]
  - ECZEMA [None]
  - EOSINOPHIL COUNT ABNORMAL [None]
  - FEAR [None]
  - HAEMORRHOIDS [None]
  - HALLUCINATION, AUDITORY [None]
  - INFLUENZA [None]
  - MONOCYTE COUNT DECREASED [None]
  - NEUTROPHIL COUNT DECREASED [None]
  - SALIVARY HYPERSECRETION [None]
